FAERS Safety Report 9259570 (Version 2)
Quarter: 2013Q3

REPORT INFORMATION
  Report Type: Spontaneous
  Country: US (occurrence: US)
  Receive Date: 20130429
  Receipt Date: 20130809
  Transmission Date: 20140515
  Serious: Yes (Hospitalization, Disabling, Other)
  Sender: FDA-Public Use
  Company Number: US-ASTRAZENECA-2013SE27558

PATIENT
  Age: 45 Year
  Sex: Male

DRUGS (8)
  1. NEXIUM [Suspect]
     Indication: GASTROOESOPHAGEAL REFLUX DISEASE
     Dosage: ONCE PER DAY
     Route: 048
     Dates: start: 1996, end: 2013
  2. NEXIUM [Suspect]
     Indication: GASTROOESOPHAGEAL REFLUX DISEASE
     Route: 048
     Dates: start: 20090122
  3. ZANTAC [Concomitant]
     Dates: start: 2001
  4. PEPCID [Concomitant]
     Dates: start: 2001
  5. MYLANTA [Concomitant]
  6. PROPOXYPH-ACETAMINOPHN [Concomitant]
     Dates: start: 20081003
  7. OXAPROZIN [Concomitant]
     Dates: start: 20081003
  8. HYDROCODON-ACETAMINOPH [Concomitant]
     Dates: start: 20090323

REACTIONS (17)
  - Intervertebral disc degeneration [Unknown]
  - Osteonecrosis [Unknown]
  - Musculoskeletal discomfort [Unknown]
  - Back disorder [Unknown]
  - Dyspepsia [Unknown]
  - Abdominal discomfort [Unknown]
  - Osteoporosis [Unknown]
  - Bone density decreased [Unknown]
  - Bone disorder [Unknown]
  - Multiple fractures [Unknown]
  - Stress [Unknown]
  - Poor quality sleep [Unknown]
  - Arthritis [Unknown]
  - Cataract [Unknown]
  - Rheumatoid arthritis [Unknown]
  - Osteoarthritis [Unknown]
  - Intervertebral disc protrusion [Unknown]
